FAERS Safety Report 20885601 (Version 1)
Quarter: 2022Q2

REPORT INFORMATION
  Report Type: Spontaneous
  Country: US (occurrence: US)
  Receive Date: 20220527
  Receipt Date: 20220527
  Transmission Date: 20220720
  Serious: No
  Sender: FDA-Public Use
  Company Number: US-PERRIGO-22US006438

PATIENT
  Age: 73 Year
  Sex: Female
  Weight: 60.771 kg

DRUGS (2)
  1. DICLOFENAC SODIUM [Suspect]
     Active Substance: DICLOFENAC SODIUM
     Indication: Arthritis
     Dosage: SMALL APPLICATION, QD PRN
     Route: 061
  2. DICLOFENAC SODIUM [Suspect]
     Active Substance: DICLOFENAC SODIUM
     Indication: Inflammation
     Dosage: SMALL APPLICATION, QD PRN
     Route: 061
     Dates: end: 20220427

REACTIONS (10)
  - Vision blurred [Recovering/Resolving]
  - Bronchial secretion retention [Recovering/Resolving]
  - Perfume sensitivity [Recovering/Resolving]
  - Asthma [Recovering/Resolving]
  - Dyspnoea [Recovering/Resolving]
  - Wheezing [Recovering/Resolving]
  - Incorrect dose administered [Recovered/Resolved]
  - Off label use [Recovered/Resolved]
  - Wrong technique in product usage process [Recovered/Resolved]
  - Product administered at inappropriate site [Recovered/Resolved]

NARRATIVE: CASE EVENT DATE: 20220324
